FAERS Safety Report 12257154 (Version 2)
Quarter: 2016Q3

REPORT INFORMATION
  Report Type: Spontaneous
  Country: US (occurrence: US)
  Receive Date: 20160412
  Receipt Date: 20160906
  Transmission Date: 20161109
  Serious: Yes (Other)
  Sender: FDA-Public Use
  Company Number: US-ELI_LILLY_AND_COMPANY-US201604000775

PATIENT
  Sex: Female

DRUGS (2)
  1. CYMBALTA [Suspect]
     Active Substance: DULOXETINE HYDROCHLORIDE
     Dosage: 60 MG, UNKNOWN
     Route: 065
     Dates: end: 201602
  2. CYMBALTA [Suspect]
     Active Substance: DULOXETINE HYDROCHLORIDE
     Indication: DEPRESSION
     Dosage: 30 MG, UNKNOWN
     Route: 065
     Dates: start: 2009, end: 201602

REACTIONS (12)
  - Hypersomnia [Unknown]
  - Impaired self-care [Unknown]
  - Vomiting [Unknown]
  - Depression [Unknown]
  - Depression [Unknown]
  - Breath odour [Unknown]
  - Platelet count increased [Unknown]
  - Laziness [Unknown]
  - Abdominal pain [Unknown]
  - Nausea [Unknown]
  - Nervousness [Unknown]
  - Liver disorder [Unknown]

NARRATIVE: CASE EVENT DATE: 2012
